FAERS Safety Report 13590410 (Version 1)
Quarter: 2017Q2

REPORT INFORMATION
  Report Type: Spontaneous
  Country: CN (occurrence: CN)
  Receive Date: 20170530
  Receipt Date: 20170530
  Transmission Date: 20170830
  Serious: Yes (Life-Threatening, Hospitalization)
  Sender: FDA-Public Use
  Company Number: CN-NOVOPROD-545705

PATIENT
  Age: 67 Year
  Sex: Male

DRUGS (26)
  1. ADALAT [Concomitant]
     Active Substance: NIFEDIPINE
     Indication: HEART RATE ABNORMAL
  2. TRIMEBUTINE [Concomitant]
     Active Substance: TRIMEBUTINE
     Indication: CARDIOVASCULAR EVENT PROPHYLAXIS
  3. THEOPHYLLINE [Concomitant]
     Active Substance: THEOPHYLLINE ANHYDROUS
     Indication: PAIN
     Dosage: 0.1 G, BID
     Route: 048
  4. ADALAT [Concomitant]
     Active Substance: NIFEDIPINE
     Indication: PLATELET AGGREGATION
     Dosage: 30 MG, QD
     Route: 048
  5. TRIMEBUTINE [Concomitant]
     Active Substance: TRIMEBUTINE
     Indication: HEART RATE ABNORMAL
  6. SINGULAIR [Concomitant]
     Active Substance: MONTELUKAST SODIUM
     Indication: ASTHMA
  7. APROVEL [Concomitant]
     Active Substance: IRBESARTAN
     Indication: HYPERTENSION
     Dosage: 150 MG, TID
     Route: 048
     Dates: start: 20120101
  8. SODIUM CHLORIDE. [Concomitant]
     Active Substance: SODIUM CHLORIDE
     Indication: PROPHYLAXIS
     Dosage: 250 ML
     Route: 042
  9. VINPOCETINE [Concomitant]
     Active Substance: VINPOCETINE
     Indication: PROPHYLAXIS
     Dosage: 20 MG, QD
     Route: 042
  10. CONCOR [Concomitant]
     Active Substance: BISOPROLOL FUMARATE
     Indication: HEART RATE ABNORMAL
  11. TRIMEBUTINE [Concomitant]
     Active Substance: TRIMEBUTINE
     Indication: PLATELET AGGREGATION
     Dosage: 0.1 G, TID
     Route: 048
  12. THEOPHYLLINE [Concomitant]
     Active Substance: THEOPHYLLINE ANHYDROUS
     Indication: ASTHMA
  13. PLENDIL [Concomitant]
     Active Substance: FELODIPINE
     Indication: HYPERTENSION
     Dosage: 5 MG, QD
     Route: 048
     Dates: start: 20170101
  14. ADALAT [Concomitant]
     Active Substance: NIFEDIPINE
     Indication: CARDIOVASCULAR EVENT PROPHYLAXIS
  15. CONCOR [Concomitant]
     Active Substance: BISOPROLOL FUMARATE
     Indication: BLOOD PRESSURE MANAGEMENT
  16. NOVOLIN N [Suspect]
     Active Substance: INSULIN HUMAN
     Indication: TYPE 2 DIABETES MELLITUS
     Dosage: 38 IU, QD
     Route: 058
     Dates: start: 19970101, end: 20170210
  17. PLAVIX [Concomitant]
     Active Substance: CLOPIDOGREL BISULFATE
     Indication: PLATELET AGGREGATION
     Dosage: 75 MG, QD
     Route: 048
  18. PLAVIX [Concomitant]
     Active Substance: CLOPIDOGREL BISULFATE
     Indication: HEART RATE ABNORMAL
  19. CONCOR [Concomitant]
     Active Substance: BISOPROLOL FUMARATE
     Indication: CARDIOVASCULAR EVENT PROPHYLAXIS
  20. TRIMEBUTINE [Concomitant]
     Active Substance: TRIMEBUTINE
     Indication: BLOOD PRESSURE MANAGEMENT
  21. ACARBOSE. [Suspect]
     Active Substance: ACARBOSE
     Indication: TYPE 2 DIABETES MELLITUS
     Dosage: 50 MG, TID
     Route: 048
     Dates: start: 19970101
  22. PLAVIX [Concomitant]
     Active Substance: CLOPIDOGREL BISULFATE
     Indication: BLOOD PRESSURE MANAGEMENT
  23. PLAVIX [Concomitant]
     Active Substance: CLOPIDOGREL BISULFATE
     Indication: CARDIOVASCULAR EVENT PROPHYLAXIS
  24. ADALAT [Concomitant]
     Active Substance: NIFEDIPINE
     Indication: BLOOD PRESSURE MANAGEMENT
  25. CONCOR [Concomitant]
     Active Substance: BISOPROLOL FUMARATE
     Indication: PLATELET AGGREGATION
     Dosage: 1.25 MG, QD
     Route: 048
  26. SINGULAIR [Concomitant]
     Active Substance: MONTELUKAST SODIUM
     Indication: PAIN
     Dosage: 10 MG, QD
     Route: 048

REACTIONS (1)
  - Hypoglycaemic coma [Recovering/Resolving]

NARRATIVE: CASE EVENT DATE: 20170208
